FAERS Safety Report 23605991 (Version 1)
Quarter: 2024Q1

REPORT INFORMATION
  Report Type: Spontaneous
  Country: ES (occurrence: ES)
  Receive Date: 20240307
  Receipt Date: 20240307
  Transmission Date: 20240410
  Serious: Yes (Hospitalization)
  Sender: FDA-Public Use
  Company Number: None

PATIENT
  Age: 82 Year
  Sex: Female
  Weight: 79.5 kg

DRUGS (4)
  1. BISOPROLOL [Suspect]
     Active Substance: BISOPROLOL\BISOPROLOL FUMARATE
     Indication: Ventricular tachycardia
     Route: 048
     Dates: start: 20231224, end: 20240110
  2. AMIODARONE [Suspect]
     Active Substance: AMIODARONE
     Indication: Ventricular tachycardia
     Dosage: 200 MG INITIALLY EVERY 8 HOURS UNTIL 12/30, EVERY 12 HOURS UNTIL 01/05 AND EVERY 24 HOURS THEREAFTER
     Route: 048
     Dates: start: 20240105
  3. AMIODARONE [Suspect]
     Active Substance: AMIODARONE
     Indication: Ventricular tachycardia
     Dosage: 200 MG INITIALLY EVERY 8 HOURS UNTIL 12/30, EVERY 12 HOURS UNTIL 01/05 AND EVERY 24 HOURS THEREAFTER
     Route: 048
     Dates: start: 20231224, end: 20231229
  4. AMIODARONE [Suspect]
     Active Substance: AMIODARONE
     Indication: Ventricular tachycardia
     Dosage: 200 MG INITIALLY EVERY 8 HOURS UNTIL 12/30, EVERY 12 HOURS UNTIL 01/05 AND EVERY 24 HOURS THEREAFTER
     Route: 048
     Dates: start: 20231231, end: 20240104

REACTIONS (1)
  - Sinus bradycardia [Recovered/Resolved]

NARRATIVE: CASE EVENT DATE: 20240110
